FAERS Safety Report 6547391-3 (Version None)
Quarter: 2010Q1

REPORT INFORMATION
  Report Type: 
  Country: None (occurrence: None)
  Receive Date: 20100122
  Receipt Date: 20100114
  Transmission Date: 20100710
  Serious: Yes (Hospitalization)
  Sender: FDA-Public Use
  Company Number: PHHY2010DE02494

PATIENT
  Sex: Male

DRUGS (11)
  1. ALISKIREN ALI+ [Suspect]
     Indication: HYPERTENSION
     Dosage: 300 MG, PER DAY
     Route: 048
     Dates: start: 20081202
  2. DIURETICS [Concomitant]
  3. ANTIHYPERTENSIVES [Concomitant]
  4. GLIMEPIRIDE [Concomitant]
     Dosage: 2 MG, PER DAY
     Route: 048
  5. BISOPROLOL FUMARATE [Concomitant]
     Dosage: 10 MG, PER DAY
     Route: 048
  6. METFORMIN [Concomitant]
     Dosage: 2000 MG, PER DAY
     Route: 048
  7. MOXONIDINE [Concomitant]
     Dosage: 0.4 MG, PER DAY
     Route: 048
  8. TRIMIPRAMINE [Concomitant]
     Dosage: 75 MG, PER DAY
     Route: 048
  9. SERTRALINE HCL [Concomitant]
     Dosage: 150 MG, PER DAY
     Route: 048
  10. RAMIPRIL [Concomitant]
     Dosage: 5 MG, PER DAY
     Route: 048
  11. SIMVASTATIN [Concomitant]
     Dosage: 20 MG, PER DAY
     Route: 048
     Dates: start: 20100114

REACTIONS (7)
  - CONDITION AGGRAVATED [None]
  - DEPRESSION [None]
  - DIZZINESS [None]
  - HYPERLIPIDAEMIA [None]
  - MYOCARDIAL ISCHAEMIA [None]
  - SOCIAL PHOBIA [None]
  - SOMATOFORM DISORDER [None]
